FAERS Safety Report 25969074 (Version 1)
Quarter: 2025Q4

REPORT INFORMATION
  Report Type: Report from Study
  Country: CA (occurrence: CA)
  Receive Date: 20251028
  Receipt Date: 20251028
  Transmission Date: 20260117
  Serious: Yes (Hospitalization)
  Sender: ROCHE
  Company Number: CA-ROCHE-10000292502

PATIENT
  Age: 67 Year
  Sex: Male

DRUGS (9)
  1. ACTEMRA ACTPEN [Suspect]
     Active Substance: TOCILIZUMAB
     Indication: Rheumatoid arthritis
     Dosage: DRUG DOSE FIRST ADMINISTERED IS 162 MG MILLIGRAM(S)
     Route: 058
     Dates: start: 20150727
  2. ARAVA [Concomitant]
     Active Substance: LEFLUNOMIDE
  3. MORPHINE [Concomitant]
     Active Substance: MORPHINE
  4. PREDNISONE [Concomitant]
     Active Substance: PREDNISONE
  5. SULFASALAZINE [Concomitant]
     Active Substance: SULFASALAZINE
  6. VITAMIN D [Concomitant]
     Active Substance: VITAMIN D NOS
  7. VITAMIN B12 [Concomitant]
     Active Substance: CYANOCOBALAMIN
  8. Peroxicam [Concomitant]
  9. METHOTREXATE [Concomitant]
     Active Substance: METHOTREXATE

REACTIONS (4)
  - Nephrolithiasis [Unknown]
  - Duodenal ulcer perforation [Unknown]
  - Pain in extremity [Unknown]
  - Ureterolithiasis [Unknown]

NARRATIVE: CASE EVENT DATE: 20250501
